FAERS Safety Report 21093288 (Version 6)
Quarter: 2025Q4

REPORT INFORMATION
  Report Type: Spontaneous
  Country: US (occurrence: US)
  Receive Date: 20220718
  Receipt Date: 20251007
  Transmission Date: 20260118
  Serious: No
  Sender: SANOFI AVENTIS
  Company Number: US-SA-SAC20220715000144

PATIENT
  Age: 28 Year
  Sex: Male
  Weight: 96.1 kg

DRUGS (1)
  1. DUPIXENT [Suspect]
     Active Substance: DUPILUMAB
     Indication: Dermatitis atopic
     Dosage: 300 MG, QOW
     Route: 058
     Dates: start: 20220413

REACTIONS (9)
  - COVID-19 [Unknown]
  - Lymphadenopathy [Not Recovered/Not Resolved]
  - Condition aggravated [Unknown]
  - Influenza A virus test positive [Recovered/Resolved]
  - COVID-19 [Recovering/Resolving]
  - Cough [Unknown]
  - Oropharyngeal pain [Unknown]
  - Conjunctivitis [Recovered/Resolved]
  - Arthralgia [Recovered/Resolved]

NARRATIVE: CASE EVENT DATE: 20220413
